FAERS Safety Report 12759334 (Version 1)
Quarter: 2016Q3

REPORT INFORMATION
  Report Type: Spontaneous
  Country: US (occurrence: US)
  Receive Date: 20160919
  Receipt Date: 20160919
  Transmission Date: 20161109
  Serious: No
  Sender: FDA-Public Use
  Company Number: US-JUBILANT HOLLISTERSTIER LLC-1057445

PATIENT
  Age: 26 Year
  Sex: Female

DRUGS (14)
  1. SWEET GUM POLLEN [Suspect]
     Active Substance: LIQUIDAMBAR STYRACIFLUA POLLEN
     Dates: start: 20160104, end: 20160104
  2. STANDARDIZED CAT PELT [Suspect]
     Active Substance: FELIS CATUS DANDER
     Dates: start: 20160104, end: 20160104
  3. STANDARDIZED GRASS POLLEN, GRASS MIX 7 [Suspect]
     Active Substance: AGROSTIS GIGANTEA POLLEN\ANTHOXANTHUM ODORATUM POLLEN\DACTYLIS GLOMERATA POLLEN\FESTUCA PRATENSIS POLLEN\LOLIUM PERENNE POLLEN\PHLEUM PRATENSE POLLEN\POA PRATENSIS POLLEN
     Dates: start: 20160104, end: 20160104
  4. STERILE DILUENT FOR ALLERGENIC EXTRACT (ALBUMIN (HUMAN)\PHENOL) [Suspect]
     Active Substance: ALBUMIN HUMAN\PHENOL
     Dates: start: 20160104, end: 20160104
  5. MIXTURE OF STANDARDIZED MITES [Suspect]
     Active Substance: DERMATOPHAGOIDES FARINAE\DERMATOPHAGOIDES PTERONYSSINUS
     Dates: start: 20160104, end: 20160104
  6. POLLENS - TREES, TREE MIX 6 [Suspect]
     Active Substance: BETULA NIGRA POLLEN\BETULA PAPYRIFERA POLLEN\BETULA PENDULA POLLEN\FAGUS GRANDIFOLIA POLLEN\FRAXINUS AMERICANA POLLEN\JUGLANS NIGRA POLLEN\POPULUS DELTOIDES POLLEN\ULMUS AMERICANA POLLEN
     Dates: start: 20160104, end: 20160104
  7. JOHNSON GRASS POLLEN [Suspect]
     Active Substance: SORGHUM HALEPENSE POLLEN
     Dates: start: 20160104, end: 20160104
  8. BAHIA GRASS POLLEN [Suspect]
     Active Substance: PASPALUM NOTATUM POLLEN
     Dates: start: 20160104, end: 20160104
  9. RAGWEED MIXTURE [Suspect]
     Active Substance: AMBROSIA ARTEMISIIFOLIA POLLEN\AMBROSIA BIDENTATA POLLEN\AMBROSIA PSILOSTACHYA POLLEN\AMBROSIA TRIFIDA POLLEN
     Dates: start: 20160104, end: 20160104
  10. BERMUDA GRASS, STANDARDIZED [Suspect]
     Active Substance: CYNODON DACTYLON POLLEN
     Dates: start: 20160104, end: 20160104
  11. ANIMAL ALLERGENS, DOG HAIR AND DANDER CANIS SPP. [Suspect]
     Active Substance: CANIS LUPUS FAMILIARIS DANDER\CANIS LUPUS FAMILIARIS HAIR
     Indication: HYPERSENSITIVITY
     Dates: start: 20160104, end: 20160104
  12. POLLENS - TREES, MULBERRY MIX [Suspect]
     Active Substance: MORUS ALBA POLLEN\MORUS RUBRA POLLEN
     Dates: start: 20160104, end: 20160104
  13. POLLENS - TREES, TREE MIX 5 [Suspect]
     Active Substance: ACER NEGUNDO POLLEN\ACER RUBRUM POLLEN\ACER SACCHARUM POLLEN\CARYA ILLINOINENSIS POLLEN\PLATANUS OCCIDENTALIS POLLEN\QUERCUS ALBA POLLEN\QUERCUS RUBRA POLLEN\QUERCUS VIRGINIANA POLLEN\SALIX NIGRA POLLEN
     Dates: start: 20160104, end: 20160104
  14. ENGLISH PLANTAIN POLLEN [Suspect]
     Active Substance: PLANTAGO LANCEOLATA POLLEN
     Dates: start: 20160104, end: 20160104

REACTIONS (3)
  - Erythema [Recovered/Resolved]
  - Pruritus [Recovered/Resolved]
  - Urticaria [Recovered/Resolved]

NARRATIVE: CASE EVENT DATE: 20160104
